FAERS Safety Report 4969142-6 (Version None)
Quarter: 2006Q2

REPORT INFORMATION
  Report Type: 
  Country: None (occurrence: None)
  Receive Date: 20060411
  Receipt Date: 20050606
  Transmission Date: 20061013
  Serious: Yes (Other)
  Sender: FDA-Public Use
  Company Number: US-BRISTOL-MYERS SQUIBB COMPANY-12994521

PATIENT
  Age: 57 Year
  Sex: Female
  Weight: 68 kg

DRUGS (8)
  1. CARBOPLATIN [Suspect]
     Indication: OVARIAN CANCER
     Route: 042
     Dates: start: 20050522, end: 20050522
  2. BENADRYL [Concomitant]
     Indication: PREMEDICATION
     Route: 042
  3. TAGAMET [Concomitant]
     Indication: PREMEDICATION
     Route: 042
  4. ALOXI [Concomitant]
     Indication: PREMEDICATION
     Route: 042
  5. DECADRON [Concomitant]
     Indication: PREMEDICATION
     Route: 048
  6. FOSAMAX [Concomitant]
  7. AMITRIPTYLINE HCL [Concomitant]
  8. LOMOTIL [Concomitant]

REACTIONS (3)
  - DYSPNOEA [None]
  - EAR PAIN [None]
  - FLUSHING [None]
